APPROVED DRUG PRODUCT: HALOBETASOL PROPIONATE
Active Ingredient: HALOBETASOL PROPIONATE
Strength: 0.05%
Dosage Form/Route: OINTMENT;TOPICAL
Application: A077109 | Product #001 | TE Code: AB
Applicant: COSETTE PHARMACEUTICALS INC
Approved: Jun 14, 2005 | RLD: No | RS: No | Type: RX